FAERS Safety Report 14595763 (Version 1)
Quarter: 2018Q1

REPORT INFORMATION
  Report Type: Spontaneous
  Country: US (occurrence: US)
  Receive Date: 20180303
  Receipt Date: 20180303
  Transmission Date: 20180509
  Serious: No
  Sender: FDA-Public Use
  Company Number: US-JNJFOC-20180223426

PATIENT
  Age: 47 Year
  Sex: Male
  Weight: 74.84 kg

DRUGS (4)
  1. MENS ROGAINE EXTRA STRENGTH [Concomitant]
     Active Substance: MINOXIDIL
     Indication: ALOPECIA
     Route: 065
     Dates: start: 201712
  2. MENS ROGAINE EXTRA STRENGTH [Suspect]
     Active Substance: MINOXIDIL
     Route: 061
  3. MENS ROGAINE EXTRA STRENGTH [Concomitant]
     Active Substance: MINOXIDIL
     Indication: ALOPECIA
     Route: 065
  4. MENS ROGAINE EXTRA STRENGTH [Suspect]
     Active Substance: MINOXIDIL
     Indication: ALOPECIA
     Route: 061
     Dates: start: 20180126

REACTIONS (4)
  - Dysgeusia [Recovering/Resolving]
  - Product administered at inappropriate site [Unknown]
  - Inappropriate schedule of drug administration [Unknown]
  - Underdose [Unknown]

NARRATIVE: CASE EVENT DATE: 20180126
